APPROVED DRUG PRODUCT: GRANISETRON HYDROCHLORIDE
Active Ingredient: GRANISETRON HYDROCHLORIDE
Strength: EQ 1MG BASE
Dosage Form/Route: TABLET;ORAL
Application: A078846 | Product #001 | TE Code: AB
Applicant: DR REDDYS LABORATORIES LTD
Approved: Feb 27, 2009 | RLD: No | RS: No | Type: RX